FAERS Safety Report 4491555-X (Version None)
Quarter: 2004Q4

REPORT INFORMATION
  Report Type: 
  Country: None (occurrence: None)
  Receive Date: 20041101
  Receipt Date: 20041021
  Transmission Date: 20050328
  Serious: Yes (Hospitalization)
  Sender: FDA-Public Use
  Company Number: 2003166911GB

PATIENT
  Age: 54 Year
  Sex: Female

DRUGS (2)
  1. AROMASIN [Suspect]
     Indication: BREAST CANCER FEMALE
     Dosage: 20 MG, QD, ORAL
     Route: 048
     Dates: start: 20030512, end: 20030612
  2. AROMASIN [Suspect]
     Indication: BREAST CANCER FEMALE
     Dosage: 20 MG, QD, ORAL
     Route: 048
     Dates: start: 20030620, end: 20030624

REACTIONS (2)
  - PLEURITIC PAIN [None]
  - PYREXIA [None]
